FAERS Safety Report 5361717-8 (Version None)
Quarter: 2007Q2

REPORT INFORMATION
  Report Type: 
  Country: None (occurrence: None)
  Receive Date: 20070615
  Receipt Date: 20070615
  Transmission Date: 20071010
  Serious: Yes (Other)
  Sender: FDA-Public Use
  Company Number: None

PATIENT
  Age: 49 Year
  Sex: Male

DRUGS (1)
  1. ETHYOL [Suspect]
     Indication: DRY MOUTH
     Dosage: DAILY M-F 500MG SQ X 6
     Route: 058
     Dates: start: 20070607

REACTIONS (2)
  - PRURITUS [None]
  - RASH MACULO-PAPULAR [None]
